FAERS Safety Report 4817228-9 (Version None)
Quarter: 2005Q4

REPORT INFORMATION
  Report Type: 
  Country: None (occurrence: None)
  Receive Date: 20051101
  Receipt Date: 20051020
  Transmission Date: 20060501
  Serious: Yes (Death, Other)
  Sender: FDA-Public Use
  Company Number: GB-NOVOPROD-247938

PATIENT
  Age: 35 Year
  Sex: Male

DRUGS (7)
  1. NOVOSEVEN [Suspect]
     Indication: POST PROCEDURAL HAEMORRHAGE
     Dosage: 3 BOLUS DOSES EVERY 2 HOUR
  2. BLOOD CELLS, PACKED HUMAN [Concomitant]
  3. FRESH FROZEN PLASMA [Concomitant]
  4. PLATELETS [Concomitant]
  5. KRYOPRAEZIPITAT DER BLUTFORMEL [Concomitant]
  6. CALCIUM GLUCONATE [Concomitant]
  7. DESMOPRESSIN [Concomitant]

REACTIONS (2)
  - MULTI-ORGAN FAILURE [None]
  - SEPSIS [None]
